FAERS Safety Report 5127794-4 (Version None)
Quarter: 2006Q4

REPORT INFORMATION
  Report Type: 
  Country: None (occurrence: None)
  Receive Date: 20061016
  Receipt Date: 20061005
  Transmission Date: 20070319
  Serious: Yes (Life-Threatening)
  Sender: FDA-Public Use
  Company Number: FR-ROCHE-466282

PATIENT
  Age: 74 Year
  Sex: Female

DRUGS (5)
  1. ROCEPHIN [Suspect]
     Indication: ERYSIPELAS
     Dosage: FORM REPORTED AS INJECTABLE SOLUTION.
     Route: 042
     Dates: start: 20060811
  2. TRANXENE [Concomitant]
     Route: 048
  3. DOLIPRANE [Concomitant]
     Route: 048
  4. CYCLO 3 FORT [Concomitant]
     Route: 048
  5. LIBRAX [Concomitant]
     Route: 048

REACTIONS (5)
  - ANAPHYLACTIC SHOCK [None]
  - CARDIAC ARREST [None]
  - HEMIPLEGIA [None]
  - LUNG DISORDER [None]
  - RESPIRATORY ARREST [None]
